FAERS Safety Report 15042588 (Version 1)
Quarter: 2018Q2

REPORT INFORMATION
  Report Type: Spontaneous
  Country: AT (occurrence: AT)
  Receive Date: 20180621
  Receipt Date: 20180621
  Transmission Date: 20180711
  Serious: Yes (Hospitalization, Other)
  Sender: FDA-Public Use
  Company Number: AT-MYLANLABS-2018M1040534

PATIENT
  Age: 64 Year
  Sex: Female

DRUGS (12)
  1. XANOR [Suspect]
     Active Substance: ALPRAZOLAM
     Indication: DEPRESSION
  2. TRITTICO [Suspect]
     Active Substance: TRAZODONE HYDROCHLORIDE
     Indication: PSYCHOMOTOR HYPERACTIVITY
     Dosage: UNK
  3. TRITTICO [Suspect]
     Active Substance: TRAZODONE HYDROCHLORIDE
     Indication: APATHY
     Dosage: 150 MG, QD (0-0-0-1)
     Route: 065
  4. ADJUVIN [Suspect]
     Active Substance: SERTRALINE HYDROCHLORIDE
     Indication: PSYCHOMOTOR HYPERACTIVITY
     Dosage: UNK
  5. TRITTICO [Suspect]
     Active Substance: TRAZODONE HYDROCHLORIDE
     Indication: DEPRESSION
  6. ADJUVIN [Suspect]
     Active Substance: SERTRALINE HYDROCHLORIDE
     Indication: APATHY
     Dosage: 100 MG, QD (1-0-0)
     Route: 065
  7. ADJUVIN [Suspect]
     Active Substance: SERTRALINE HYDROCHLORIDE
     Indication: DEPRESSION
  8. RISPERIDONE. [Suspect]
     Active Substance: RISPERIDONE
     Indication: DEPRESSION
     Dosage: 1 MG, QD (0-0-1)
  9. RISPERIDONE. [Suspect]
     Active Substance: RISPERIDONE
     Indication: APATHY
     Dosage: UNK
  10. RISPERIDONE. [Suspect]
     Active Substance: RISPERIDONE
     Indication: PSYCHOMOTOR HYPERACTIVITY
  11. XANOR [Suspect]
     Active Substance: ALPRAZOLAM
     Indication: APATHY
     Dosage: UNK
  12. XANOR [Suspect]
     Active Substance: ALPRAZOLAM
     Indication: PSYCHOMOTOR HYPERACTIVITY
     Dosage: 0.5 MG, BID (0-1-1)

REACTIONS (2)
  - Acute coronary syndrome [Recovered/Resolved]
  - Dyspnoea [Recovered/Resolved]
